FAERS Safety Report 5535401-1 (Version None)
Quarter: 2007Q4

REPORT INFORMATION
  Report Type: 
  Country: None (occurrence: None)
  Receive Date: 20071206
  Receipt Date: 20071126
  Transmission Date: 20080405
  Serious: Yes (Other)
  Sender: FDA-Public Use
  Company Number: AU-PFIZER INC-2007098769

PATIENT
  Age: 68 Year
  Sex: Female

DRUGS (5)
  1. CELEBREX [Suspect]
  2. ATACAND [Concomitant]
  3. LEVOTHYROXINE SODIUM [Concomitant]
  4. FISH OIL [Concomitant]
  5. GLUCOSAMINE [Concomitant]

REACTIONS (1)
  - PLATELET COUNT DECREASED [None]
